FAERS Safety Report 6392619-6 (Version None)
Quarter: 2009Q4

REPORT INFORMATION
  Report Type: 
  Country: None (occurrence: None)
  Receive Date: 20091007
  Receipt Date: 20090811
  Transmission Date: 20100525
  Serious: No
  Sender: FDA-Public Use
  Company Number: US-ALLERGAN-0909588US

PATIENT
  Age: 56 Year
  Sex: Female

DRUGS (3)
  1. LATISSE [Suspect]
     Indication: HYPOTRICHOSIS
     Dosage: 1 GTT, QHS
     Route: 061
     Dates: start: 20090510, end: 20090601
  2. LATISSE [Suspect]
     Dosage: 1 GTT, QOD
     Route: 061
  3. LATISSE [Suspect]
     Dosage: 1 GTT, EVERY THIRD DAY
     Route: 061
     Dates: end: 20090619

REACTIONS (10)
  - DRUG ADMINISTRATION ERROR [None]
  - EYE IRRITATION [None]
  - EYE PAIN [None]
  - EYE PRURITUS [None]
  - EYELID IRRITATION [None]
  - EYELID PAIN [None]
  - EYELIDS PRURITUS [None]
  - OCULAR HYPERAEMIA [None]
  - SCAB [None]
  - SCAR [None]
